FAERS Safety Report 9286879 (Version 4)
Quarter: 2014Q1

REPORT INFORMATION
  Report Type: Spontaneous
  Country: US (occurrence: US)
  Receive Date: 20130513
  Receipt Date: 20140325
  Transmission Date: 20141002
  Serious: Yes (Hospitalization)
  Sender: FDA-Public Use
  Company Number: US-B.I. PHARMACEUTICALS,INC./RIDGEFIELD-2013-BI-13054BP

PATIENT
  Age: 67 Year
  Sex: Female
  Weight: 84.37 kg

DRUGS (14)
  1. PRADAXA [Suspect]
     Indication: ATRIAL FIBRILLATION
     Dosage: 300 MG
     Route: 048
     Dates: start: 20110720, end: 20111117
  2. ATENOLOL [Concomitant]
     Dosage: 50 MG
     Route: 065
  3. DIGOXIN [Concomitant]
     Dosage: 0.25 MG
     Route: 065
  4. LANTUS INSULIN [Concomitant]
     Route: 065
  5. PRAVACHOL [Concomitant]
     Dosage: 40 MG
     Route: 065
  6. RYTHMOL [Concomitant]
     Dosage: 450 MG
     Route: 048
  7. SPIRIVA HANDIHALER [Concomitant]
     Dosage: 18 MCG
     Route: 055
  8. ISOSORBIDE MONONITRATE [Concomitant]
     Route: 065
  9. MELOXICAM [Concomitant]
     Route: 065
  10. HYDROCHLOROTHIAZIDE [Concomitant]
     Route: 065
  11. PREVACID [Concomitant]
     Route: 065
  12. ADVAIR [Concomitant]
     Route: 065
  13. HUMALOG [Concomitant]
     Route: 065
  14. LORTAB [Concomitant]
     Route: 065

REACTIONS (5)
  - Gastrointestinal haemorrhage [Unknown]
  - Iron deficiency anaemia [Unknown]
  - Epistaxis [Unknown]
  - Gingival bleeding [Unknown]
  - Haematoma [Unknown]
